FAERS Safety Report 23283355 (Version 1)
Quarter: 2023Q4

REPORT INFORMATION
  Report Type: Spontaneous
  Country: FR (occurrence: FR)
  Receive Date: 20231211
  Receipt Date: 20231211
  Transmission Date: 20240109
  Serious: Yes (Hospitalization, Other)
  Sender: FDA-Public Use
  Company Number: None

PATIENT
  Age: 72 Year
  Sex: Male
  Weight: 61 kg

DRUGS (1)
  1. KEYTRUDA [Suspect]
     Active Substance: PEMBROLIZUMAB
     Indication: Lung carcinoma cell type unspecified stage IV
     Route: 042
     Dates: start: 20200120, end: 20201001

REACTIONS (2)
  - Axonal and demyelinating polyneuropathy [Not Recovered/Not Resolved]
  - Ichthyosis acquired [Not Recovered/Not Resolved]

NARRATIVE: CASE EVENT DATE: 20201001
